FAERS Safety Report 5073490-1 (Version None)
Quarter: 2006Q3

REPORT INFORMATION
  Report Type: 
  Country: None (occurrence: None)
  Receive Date: 20060803
  Receipt Date: 20060717
  Transmission Date: 20061208
  Serious: Yes (Hospitalization, Other)
  Sender: FDA-Public Use
  Company Number: USA040874428

PATIENT
  Age: 59 Year
  Sex: Female
  Weight: 53.6 kg

DRUGS (17)
  1. EVISTA [Suspect]
     Indication: OSTEOPENIA
     Dosage: DAILY (1/D)
     Dates: start: 20030101, end: 20050418
  2. FORTEO [Suspect]
     Indication: OSTEOPOROSIS
     Dosage: 20 UG, DAILY (1/D)
     Dates: start: 20040801, end: 20050423
  3. FORTEO [Suspect]
     Indication: OSTEOPOROSIS
     Dosage: 20 UG, DAILY (1/D)
     Dates: end: 20060601
  4. FORTEO PEN (FORTEO PEN) PEN, DISPOSABLE [Concomitant]
  5. CALCIUM (CALCIUM) [Concomitant]
  6. ACIPHEX [Concomitant]
  7. MORPHINE [Concomitant]
  8. XANAX (ALPRAZOLAM DUM) [Concomitant]
  9. MIACALCIN [Concomitant]
  10. VALIUM [Concomitant]
  11. BACLOFEN [Concomitant]
  12. ZOFRAN [Concomitant]
  13. VITAMIN B COMPLEX (VITAMIN B COMPLEX) [Concomitant]
  14. LEVBID (HYOSCYAMINE SULFATE) [Concomitant]
  15. VITAMIN C (VITAMIN C) [Concomitant]
  16. CITRACAL PLUS [Concomitant]
  17. ACTIQ [Concomitant]

REACTIONS (30)
  - ANXIETY [None]
  - ARTHRALGIA [None]
  - ASTHENIA [None]
  - BLOOD GLUCOSE INCREASED [None]
  - BONE PAIN [None]
  - CHILLS [None]
  - DECREASED APPETITE [None]
  - DRUG INEFFECTIVE [None]
  - ERYTHEMA [None]
  - FALL [None]
  - FATIGUE [None]
  - GAIT DISTURBANCE [None]
  - HYPERSENSITIVITY [None]
  - IMPAIRED DRIVING ABILITY [None]
  - INFLUENZA [None]
  - JOINT SWELLING [None]
  - MALAISE [None]
  - MOBILITY DECREASED [None]
  - MUSCULOSKELETAL PAIN [None]
  - NAUSEA [None]
  - OSTEOPOROSIS [None]
  - PAIN [None]
  - PHARMACEUTICAL PRODUCT COMPLAINT [None]
  - PROCEDURAL PAIN [None]
  - SKIN DISORDER [None]
  - SPINAL FUSION SURGERY [None]
  - UNEVALUABLE EVENT [None]
  - URINE CALCIUM INCREASED [None]
  - VAGINAL DISCHARGE [None]
  - WEIGHT DECREASED [None]
